FAERS Safety Report 25527396 (Version 3)
Quarter: 2025Q3

REPORT INFORMATION
  Report Type: Report from Study
  Country: US (occurrence: US)
  Receive Date: 20250708
  Receipt Date: 20250826
  Transmission Date: 20251021
  Serious: Yes (Hospitalization, Other)
  Sender: SUNOVION
  Company Number: US-SUMITOMO PHARMA SWITZERLAND GMBH-2025SPA007941

PATIENT
  Age: 89 Year
  Sex: Male

DRUGS (25)
  1. ORGOVYX [Suspect]
     Active Substance: RELUGOLIX
     Indication: Prostate cancer
     Route: 048
  2. ORGOVYX [Suspect]
     Active Substance: RELUGOLIX
     Route: 048
  3. ABIRATERONE [Concomitant]
     Active Substance: ABIRATERONE
  4. ARMODAFINIL [Concomitant]
     Active Substance: ARMODAFINIL
  5. BETHANECHOL [Concomitant]
     Active Substance: BETHANECHOL
  6. BICALUTAMIDE [Concomitant]
     Active Substance: BICALUTAMIDE
  7. MINERALS\VITAMINS [Concomitant]
     Active Substance: MINERALS\VITAMINS
  8. CIPROFLOXACIN [Concomitant]
     Active Substance: CIPROFLOXACIN
  9. CYANOCOBALAMIN [Concomitant]
     Active Substance: CYANOCOBALAMIN
  10. FARXIGA [Concomitant]
     Active Substance: DAPAGLIFLOZIN PROPANEDIOL
  11. FINASTERIDE [Concomitant]
     Active Substance: FINASTERIDE
  12. FLUCONAZOLE [Concomitant]
     Active Substance: FLUCONAZOLE
  13. GABAPENTIN [Concomitant]
     Active Substance: GABAPENTIN
  14. LEVOTHYROXINE [Concomitant]
     Active Substance: LEVOTHYROXINE
  15. METOPROLOL TARTRATE [Concomitant]
     Active Substance: METOPROLOL TARTRATE
  16. POTASSIUM CHLORIDE [Concomitant]
     Active Substance: POTASSIUM CHLORIDE
  17. PREDNISONE [Concomitant]
     Active Substance: PREDNISONE
  18. RIVAROXABAN [Concomitant]
     Active Substance: RIVAROXABAN
  19. SPIRONOLACTONE [Concomitant]
     Active Substance: SPIRONOLACTONE
  20. TADALAFIL [Concomitant]
     Active Substance: TADALAFIL
  21. TORSEMIDE [Concomitant]
     Active Substance: TORSEMIDE
  22. WIXELA INHUB [Concomitant]
     Active Substance: FLUTICASONE PROPIONATE\SALMETEROL XINAFOATE
  23. MIRALAX [Concomitant]
     Active Substance: POLYETHYLENE GLYCOL 3350
     Route: 048
  24. TAMSULOSIN [Concomitant]
     Active Substance: TAMSULOSIN
  25. Vitamin d3 complete [Concomitant]

REACTIONS (9)
  - Prostate cancer metastatic [Unknown]
  - Pneumonia [Unknown]
  - Urinary tract infection [Unknown]
  - Constipation [Unknown]
  - Tremor [Unknown]
  - Abdominal discomfort [Unknown]
  - Hot flush [Unknown]
  - Fatigue [Unknown]
  - Incorrect dose administered [Recovered/Resolved]

NARRATIVE: CASE EVENT DATE: 20250501
